FAERS Safety Report 19084737 (Version 3)
Quarter: 2022Q1

REPORT INFORMATION
  Report Type: Other
  Country: CA (occurrence: CA)
  Receive Date: 20210402
  Receipt Date: 20220119
  Transmission Date: 20220423
  Serious: Yes (Death, Other)
  Sender: FDA-Public Use
  Company Number: CA-CELLTRION INC.-2021CA004183

PATIENT

DRUGS (1)
  1. RITUXIMAB [Suspect]
     Active Substance: RITUXIMAB
     Indication: Relapsing-remitting multiple sclerosis
     Dosage: 1000 MG
     Route: 042

REACTIONS (6)
  - Brain neoplasm [Fatal]
  - Death [Fatal]
  - Dehydration [Fatal]
  - Adverse event [Fatal]
  - Off label use [Fatal]
  - Off label use [Unknown]
